FAERS Safety Report 8318565-6 (Version None)
Quarter: 2012Q2

REPORT INFORMATION
  Report Type: 
  Country: None (occurrence: None)
  Receive Date: 20120427
  Receipt Date: 20120420
  Transmission Date: 20120825
  Serious: Yes (Disabling, Other)
  Sender: FDA-Public Use
  Company Number: JP-ELI_LILLY_AND_COMPANY-JP201202002409

PATIENT
  Age: 63 Year
  Sex: Male

DRUGS (22)
  1. MUCODYNE [Concomitant]
     Dosage: UNK
     Route: 048
  2. TRANSAMINE CAP [Concomitant]
     Dosage: UNK
     Route: 048
  3. MORPHINE HYDROCHLORIDE [Concomitant]
     Dosage: UNK
     Route: 048
     Dates: start: 20100715
  4. HOCHUUEKKITOU [Concomitant]
     Dosage: UNK
     Route: 048
     Dates: start: 20100723
  5. ALIMTA [Suspect]
     Indication: LUNG ADENOCARCINOMA STAGE IV
     Dosage: 500 MG/M2, UNK
     Route: 042
     Dates: start: 20100720, end: 20100720
  6. SELBEX [Concomitant]
     Dosage: UNK
     Route: 048
  7. MUCOSOLVAN [Concomitant]
     Dosage: UNK
     Route: 048
  8. ALOXI [Concomitant]
     Dosage: UNK
     Dates: start: 20100720, end: 20100720
  9. MICARDIS [Concomitant]
     Dosage: UNK
     Route: 048
  10. ADONA [Concomitant]
     Dosage: UNK
     Route: 048
  11. URALYT U                           /01675401/ [Concomitant]
     Dosage: UNK
     Route: 048
  12. ALLOPURINOL [Concomitant]
     Dosage: UNK
     Route: 048
  13. CODEINE PHOSPHATE [Concomitant]
     Dosage: UNK
     Route: 048
     Dates: start: 20100715
  14. DEPAS [Concomitant]
     Dosage: UNK
     Route: 048
     Dates: start: 20100715
  15. PANVITAN [Concomitant]
     Dosage: UNK
     Route: 048
     Dates: start: 20100629
  16. GEFITINIB [Concomitant]
     Indication: LUNG ADENOCARCINOMA STAGE IV
     Dosage: UNK
     Route: 048
  17. MIYA BM [Concomitant]
     Dosage: UNK
     Route: 048
  18. PL GRAN. [Concomitant]
     Dosage: UNK
     Route: 048
     Dates: start: 20100715
  19. DECADRON [Concomitant]
     Dosage: UNK
     Dates: start: 20100720, end: 20100720
  20. BISOLVON [Concomitant]
     Dosage: UNK
     Route: 048
  21. THEO-DUR [Concomitant]
     Dosage: UNK
     Route: 048
  22. ZOLPIDEM [Concomitant]
     Dosage: UNK
     Route: 048

REACTIONS (2)
  - ACUTE GENERALISED EXANTHEMATOUS PUSTULOSIS [None]
  - BONE MARROW FAILURE [None]
